FAERS Safety Report 13905081 (Version 1)
Quarter: 2017Q3

REPORT INFORMATION
  Report Type: Report from Study
  Country: BE (occurrence: BE)
  Receive Date: 20170825
  Receipt Date: 20170825
  Transmission Date: 20171127
  Serious: Yes (Hospitalization)
  Sender: FDA-Public Use
  Company Number: BE-EMD SERONO-8000710

PATIENT
  Age: 48 Year
  Sex: Male

DRUGS (2)
  1. REBIF [Suspect]
     Active Substance: INTERFERON BETA-1A
     Indication: MULTIPLE SCLEROSIS
     Route: 058
     Dates: start: 20131217
  2. REBIF [Suspect]
     Active Substance: INTERFERON BETA-1A
     Dosage: REINTRODUCED
     Route: 058

REACTIONS (9)
  - Visual impairment [Unknown]
  - Urinary tract infection [Recovered/Resolved]
  - Speech disorder [Unknown]
  - Drug dose omission [Unknown]
  - Muscle spasticity [Unknown]
  - Wound infection [Recovered/Resolved]
  - Gait disturbance [Unknown]
  - Influenza like illness [Unknown]
  - Mood swings [Unknown]

NARRATIVE: CASE EVENT DATE: 20161219
